FAERS Safety Report 6615107-8 (Version None)
Quarter: 2010Q1

REPORT INFORMATION
  Report Type: 
  Country: None (occurrence: None)
  Receive Date: 20100305
  Receipt Date: 20100225
  Transmission Date: 20100710
  Serious: Yes (Hospitalization)
  Sender: FDA-Public Use
  Company Number: AU-ASTRAZENECA-2010SE08360

PATIENT
  Age: 25749 Day
  Sex: Female

DRUGS (1)
  1. MERREM [Suspect]
     Route: 042
     Dates: start: 20091128, end: 20091208

REACTIONS (1)
  - EOSINOPHILIA [None]
